FAERS Safety Report 5633376-8 (Version None)
Quarter: 2008Q1

REPORT INFORMATION
  Report Type: 
  Country: None (occurrence: None)
  Receive Date: 20080221
  Receipt Date: 20080211
  Transmission Date: 20080703
  Serious: Yes (Disabling)
  Sender: FDA-Public Use
  Company Number: AU-PFIZER INC-2008001680

PATIENT
  Sex: Female
  Weight: 61 kg

DRUGS (6)
  1. LIPITOR [Suspect]
     Dates: start: 20071204, end: 20080103
  2. NORVASC [Concomitant]
  3. NOTEN [Concomitant]
  4. QUINAPRIL HCL [Concomitant]
  5. DIABEX [Concomitant]
  6. ASPIRIN [Concomitant]

REACTIONS (4)
  - HYPOAESTHESIA [None]
  - JOINT STIFFNESS [None]
  - LETHARGY [None]
  - PAIN IN EXTREMITY [None]
